FAERS Safety Report 5369234-6 (Version None)
Quarter: 2007Q2

REPORT INFORMATION
  Report Type: 
  Country: None (occurrence: None)
  Receive Date: 20070621
  Receipt Date: 20070621
  Transmission Date: 20071010
  Serious: Yes (Life-Threatening, Hospitalization)
  Sender: FDA-Public Use
  Company Number: None

PATIENT
  Age: 18 Year
  Sex: Male

DRUGS (1)
  1. EPZICOM [Suspect]

REACTIONS (15)
  - DRUG HYPERSENSITIVITY [None]
  - FATIGUE [None]
  - HEADACHE [None]
  - HEART RATE INCREASED [None]
  - HYPERGLYCAEMIA [None]
  - HYPOAESTHESIA [None]
  - HYPOKALAEMIA [None]
  - HYPONATRAEMIA [None]
  - HYPOTENSION [None]
  - PARAESTHESIA [None]
  - RENAL FAILURE ACUTE [None]
  - SCLERAL DISCOLOURATION [None]
  - SEPSIS [None]
  - SKIN EXFOLIATION [None]
  - TREATMENT NONCOMPLIANCE [None]
